FAERS Safety Report 7267129-4 (Version None)
Quarter: 2011Q1

REPORT INFORMATION
  Report Type: 
  Country: None (occurrence: None)
  Receive Date: 20110121
  Receipt Date: 20110109
  Transmission Date: 20110831
  Serious: Yes (Death)
  Sender: FDA-Public Use
  Company Number: 2011000170

PATIENT
  Age: 48 Year
  Sex: Female

DRUGS (2)
  1. GEMCITABINE [Suspect]
     Indication: PANCREATIC CARCINOMA
     Dates: start: 20100501, end: 20101001
  2. TARCEVA [Suspect]
     Indication: PANCREATIC CARCINOMA
     Dosage: (MG),ORAL
     Route: 048
     Dates: start: 20100501, end: 20101001

REACTIONS (2)
  - PANCREATIC CARCINOMA [None]
  - NEOPLASM MALIGNANT [None]
